FAERS Safety Report 13740315 (Version 1)
Quarter: 2017Q3

REPORT INFORMATION
  Report Type: Report from Study
  Country: AU (occurrence: AU)
  Receive Date: 20170711
  Receipt Date: 20170711
  Transmission Date: 20171127
  Serious: Yes (Other)
  Sender: FDA-Public Use
  Company Number: AU-ROCHE-1953526

PATIENT
  Age: 62 Year
  Sex: Male

DRUGS (1)
  1. ACTEMRA [Suspect]
     Active Substance: TOCILIZUMAB
     Indication: RHEUMATOID ARTHRITIS
     Dosage: ONGOING
     Route: 042
     Dates: start: 20170120

REACTIONS (4)
  - Nasopharyngitis [Recovered/Resolved]
  - Device leakage [Unknown]
  - Ill-defined disorder [Unknown]
  - Underdose [Unknown]

NARRATIVE: CASE EVENT DATE: 20170621
